FAERS Safety Report 8480370-8 (Version None)
Quarter: 2012Q3

REPORT INFORMATION
  Report Type: 
  Country: None (occurrence: None)
  Receive Date: 20120702
  Receipt Date: 20120620
  Transmission Date: 20120928
  Serious: Yes (Other)
  Sender: FDA-Public Use
  Company Number: CA-BRISTOL-MYERS SQUIBB COMPANY-16703324

PATIENT
  Age: 62 Year
  Sex: Female

DRUGS (6)
  1. METHOTREXATE [Concomitant]
     Dosage: INJECTION
  2. SULFASALAZINE [Concomitant]
  3. ORENCIA [Suspect]
     Indication: RHEUMATOID ARTHRITIS
     Dosage: INF:8,LAST INFUSION ON 24-MAY-2012
     Route: 042
     Dates: start: 20111201
  4. PREDNISONE TAB [Concomitant]
  5. LANACANE [Suspect]
     Indication: PAIN
  6. PLAQUENIL [Concomitant]

REACTIONS (2)
  - PARAPLEGIA [None]
  - FAECES DISCOLOURED [None]
